FAERS Safety Report 4316674-X (Version None)
Quarter: 2004Q1

REPORT INFORMATION
  Report Type: 
  Country: None (occurrence: None)
  Receive Date: 20040311
  Receipt Date: 20040302
  Transmission Date: 20041129
  Serious: Yes (Other)
  Sender: FDA-Public Use
  Company Number: 2004-01-1069

PATIENT
  Age: 55 Year
  Sex: Female
  Weight: 88 kg

DRUGS (7)
  1. VIRAFERONPEG [Suspect]
     Indication: HEPATITIS C
     Dosage: 1.5 UG/KG QW SUBCUTANEOUS
     Route: 058
     Dates: start: 20030116, end: 20030501
  2. REBETOL [Suspect]
     Indication: HEPATITIS C
     Dosage: 1200 MG QD ORAL
     Route: 048
     Dates: start: 20030116, end: 20030415
  3. DEPAKOTE [Concomitant]
  4. IXEL (MILNACIPRAN) [Concomitant]
  5. OMEPRAZOLE [Concomitant]
  6. MOVICOL (MACROGOL 3350) [Concomitant]
  7. LOVENOX [Concomitant]

REACTIONS (5)
  - CATARACT [None]
  - MACULAR HOLE [None]
  - RETINAL DISORDER [None]
  - VISION BLURRED [None]
  - VISUAL ACUITY REDUCED [None]
